FAERS Safety Report 6383582-2 (Version None)
Quarter: 2009Q4

REPORT INFORMATION
  Report Type: 
  Country: None (occurrence: None)
  Receive Date: 20091001
  Receipt Date: 20090925
  Transmission Date: 20100525
  Serious: Yes (Hospitalization)
  Sender: FDA-Public Use
  Company Number: US-ELI_LILLY_AND_COMPANY-US200909006351

PATIENT
  Sex: Male

DRUGS (5)
  1. BYETTA [Suspect]
     Dosage: UNK, UNKNOWN
     Dates: start: 20060101
  2. HUMALOG [Concomitant]
     Dosage: UNK, UNKNOWN
     Dates: start: 20090801
  3. GLUCOPHAGE [Concomitant]
     Dosage: UNK, UNKNOWN
  4. AMARYL [Concomitant]
     Dosage: UNK, UNKNOWN
  5. JANUVIA [Concomitant]
     Dosage: UNK, UNKNOWN

REACTIONS (5)
  - BLOOD GLUCOSE INCREASED [None]
  - DRUG INEFFECTIVE [None]
  - LEUKAEMIA [None]
  - OFF LABEL USE [None]
  - POOR QUALITY DRUG ADMINISTERED [None]
